FAERS Safety Report 6552636-X (Version None)
Quarter: 2010Q1

REPORT INFORMATION
  Report Type: 
  Country: None (occurrence: None)
  Receive Date: 20100126
  Receipt Date: 20100120
  Transmission Date: 20100710
  Serious: Yes (Hospitalization)
  Sender: FDA-Public Use
  Company Number: A0841079A

PATIENT
  Age: 61 Year
  Sex: Male
  Weight: 86 kg

DRUGS (20)
  1. MELPHALAN HYDROCHLORIDE [Suspect]
     Indication: NON-HODGKIN'S LYMPHOMA
  2. VELCADE [Suspect]
     Indication: NON-HODGKIN'S LYMPHOMA
     Route: 042
     Dates: start: 20090515, end: 20090524
  3. CARMUSTINE [Suspect]
     Indication: NON-HODGKIN'S LYMPHOMA
  4. ETOPOSIDE [Suspect]
     Indication: NON-HODGKIN'S LYMPHOMA
  5. CYTARABINE [Suspect]
     Indication: NON-HODGKIN'S LYMPHOMA
  6. LEVODOPA [Concomitant]
  7. KEPPRA [Concomitant]
  8. PROTONIX [Concomitant]
  9. FLORINEF [Concomitant]
  10. JANUVIA [Concomitant]
  11. CULTURELLE [Concomitant]
  12. MAGNESIUM OXIDE [Concomitant]
  13. POTASSIUM [Concomitant]
  14. ZOCOR [Concomitant]
  15. XANAX [Concomitant]
  16. LORAZEPAM [Concomitant]
  17. EFFEXOR [Concomitant]
  18. MIDODRINE HYDROCHLORIDE [Concomitant]
  19. FLUIDS [Concomitant]
  20. RED BLOOD CELL TRANSFUSION [Concomitant]

REACTIONS (6)
  - ABDOMINAL PAIN UPPER [None]
  - FEBRILE NEUTROPENIA [None]
  - HEADACHE [None]
  - POLLAKIURIA [None]
  - POOR DENTAL CONDITION [None]
  - PRODUCTIVE COUGH [None]
